FAERS Safety Report 22205567 (Version 1)
Quarter: 2023Q2

REPORT INFORMATION
  Report Type: Spontaneous
  Country: US (occurrence: US)
  Receive Date: 20230413
  Receipt Date: 20230413
  Transmission Date: 20230721
  Serious: No
  Sender: FDA-Public Use
  Company Number: US-ABBVIE-4342532

PATIENT
  Sex: Male

DRUGS (1)
  1. RINVOQ [Suspect]
     Active Substance: UPADACITINIB
     Indication: Dermatitis atopic
     Dosage: 30 MILLIGRAM, FORM STRENGTH: 30 MG
     Route: 048
     Dates: start: 202209, end: 202303

REACTIONS (1)
  - Eczema herpeticum [Not Recovered/Not Resolved]

NARRATIVE: CASE EVENT DATE: 20230301
